FAERS Safety Report 16108073 (Version 1)
Quarter: 2019Q1

REPORT INFORMATION
  Report Type: Report from Study
  Country: US (occurrence: US)
  Receive Date: 20190322
  Receipt Date: 20190322
  Transmission Date: 20190418
  Serious: No
  Sender: FDA-Public Use
  Company Number: PHEH2019US012325

PATIENT
  Sex: Male
  Weight: 96.15 kg

DRUGS (1)
  1. COSENTYX [Suspect]
     Active Substance: SECUKINUMAB
     Indication: PSORIASIS
     Dosage: 300 MG, UNK (AT DAY 28 (DOSE 5) THEN EVERY 4 WEEKS AS DIRECTED)
     Route: 058
     Dates: start: 201902

REACTIONS (1)
  - Drug ineffective [Unknown]
